FAERS Safety Report 8397945-7 (Version None)
Quarter: 2012Q2

REPORT INFORMATION
  Report Type: 
  Country: None (occurrence: None)
  Receive Date: 20120531
  Receipt Date: 20120521
  Transmission Date: 20120825
  Serious: Yes (Other)
  Sender: FDA-Public Use
  Company Number: DE-JNJFOC-20120307858

PATIENT
  Age: 42 Year
  Sex: Female
  Weight: 107 kg

DRUGS (8)
  1. NITRENDIPIN [Concomitant]
  2. OMEPRAZOLE [Concomitant]
  3. ALLOPURINOL [Concomitant]
  4. ENALAPRIL MALEATE [Concomitant]
  5. LEVOTHYROXINE SODIUM [Concomitant]
  6. STELARA [Suspect]
     Indication: PSORIASIS
     Route: 058
     Dates: start: 20090320
  7. METOPROLOL TARTRATE AND HYDROCHLOROTHIAZIDE [Concomitant]
  8. FUROSEMIDE [Concomitant]

REACTIONS (2)
  - APHASIA [None]
  - HEADACHE [None]
